FAERS Safety Report 5302513-7 (Version None)
Quarter: 2007Q1

REPORT INFORMATION
  Report Type: 
  Country: None (occurrence: None)
  Receive Date: 20070201
  Receipt Date: 20061128
  Transmission Date: 20070707
  Serious: No
  Sender: FDA-Public Use
  Company Number: 2006PV026027

PATIENT
  Sex: Female

DRUGS (5)
  1. BYETTA [Suspect]
     Indication: DECREASED APPETITE
     Dosage: 10 MCG; BID; SC;  5 MCG; BID; SC
     Route: 058
     Dates: start: 20060801, end: 20060901
  2. BYETTA [Suspect]
     Indication: HYPOGLYCAEMIA
     Dosage: 10 MCG; BID; SC;  5 MCG; BID; SC
     Route: 058
     Dates: start: 20060801, end: 20060901
  3. BYETTA [Suspect]
     Indication: DECREASED APPETITE
     Dosage: 10 MCG; BID; SC;  5 MCG; BID; SC
     Route: 058
     Dates: start: 20060901, end: 20061128
  4. BYETTA [Suspect]
     Indication: HYPOGLYCAEMIA
     Dosage: 10 MCG; BID; SC;  5 MCG; BID; SC
     Route: 058
     Dates: start: 20060901, end: 20061128
  5. ALLERGY MEDICATION [Concomitant]

REACTIONS (8)
  - ABDOMINAL TENDERNESS [None]
  - ARTHRALGIA [None]
  - DECREASED APPETITE [None]
  - FLATULENCE [None]
  - HEADACHE [None]
  - INJECTION SITE IRRITATION [None]
  - INJECTION SITE RASH [None]
  - NAUSEA [None]
